FAERS Safety Report 13585350 (Version 1)
Quarter: 2017Q2

REPORT INFORMATION
  Report Type: Spontaneous
  Country: PK (occurrence: PK)
  Receive Date: 20170526
  Receipt Date: 20170526
  Transmission Date: 20170830
  Serious: Yes (Life-Threatening, Hospitalization, Other)
  Sender: FDA-Public Use
  Company Number: PK-GLAXOSMITHKLINE-PK2017079175

PATIENT
  Age: 27 Year
  Sex: Female

DRUGS (3)
  1. METOCLOPRAMIDE. [Concomitant]
     Active Substance: METOCLOPRAMIDE
     Indication: ASPIRATION
     Dosage: 10 MG, UNK
     Route: 042
  2. SODIUM CITRATE. [Concomitant]
     Active Substance: SODIUM CITRATE
     Indication: ASPIRATION
     Dosage: 30 ML, UNK
     Route: 048
  3. RANITIDINE. [Suspect]
     Active Substance: RANITIDINE
     Indication: ASPIRATION
     Dosage: 150 MG, UNK
     Route: 042

REACTIONS (2)
  - Loss of consciousness [Recovered/Resolved]
  - Anaphylactic reaction [Recovered/Resolved]
